FAERS Safety Report 6062085-9 (Version None)
Quarter: 2009Q1

REPORT INFORMATION
  Report Type: 
  Country: None (occurrence: None)
  Receive Date: 20090203
  Receipt Date: 20080318
  Transmission Date: 20090719
  Serious: No
  Sender: FDA-Public Use
  Company Number: GR-BAYER-200815844GPV

PATIENT
  Age: 69 Year
  Sex: Male
  Weight: 68 kg

DRUGS (2)
  1. NEXAVAR [Suspect]
     Indication: HEPATIC NEOPLASM MALIGNANT
     Dosage: TOTAL DAILY DOSE: 400 MG  UNIT DOSE: 200 MG
     Route: 048
     Dates: start: 20080220, end: 20080305
  2. NEXAVAR [Suspect]
     Dosage: TOTAL DAILY DOSE: 800 MG  UNIT DOSE: 200 MG
     Route: 048
     Dates: start: 20080129, end: 20080208

REACTIONS (2)
  - ABDOMINAL PAIN [None]
  - JAUNDICE [None]
